FAERS Safety Report 10069631 (Version 2)
Quarter: 2014Q2

REPORT INFORMATION
  Report Type: Report from Study
  Country: JP (occurrence: JP)
  Receive Date: 20140410
  Receipt Date: 20140516
  Transmission Date: 20141212
  Serious: Yes (Hospitalization, Other)
  Sender: FDA-Public Use
  Company Number: JP-SHIRE-JP201401128

PATIENT
  Age: 64 Year
  Sex: Male

DRUGS (21)
  1. 405 (LANTHANUM CARBONATE) [Suspect]
     Indication: HYPERPHOSPHATAEMIA
     Dosage: 750 MG, UNKNOWN (PER DAY)
     Route: 048
     Dates: start: 20121205
  2. 405 (LANTHANUM CARBONATE) [Suspect]
     Dosage: 1500 MG, UNKNOWN (PER DAY)
     Route: 048
     Dates: start: 20130322, end: 20131107
  3. 405 (LANTHANUM CARBONATE) [Suspect]
     Dosage: 2250 MG, UNKNOWN (PER DAY)
     Route: 048
     Dates: start: 20131108
  4. 405 (LANTHANUM CARBONATE) [Suspect]
     Indication: HYPERPHOSPHATAEMIA
     Dosage: 750 MG, UNKNOWN (PER DAY)
     Route: 048
     Dates: start: 20100305, end: 20121204
  5. CALTAN [Suspect]
     Indication: HYPERPHOSPHATAEMIA
     Dosage: 3 G, UNKNOWN
     Route: 048
     Dates: start: 20100217, end: 20101116
  6. CALTAN [Suspect]
     Dosage: 1.5 G, UNKNOWN
     Route: 048
     Dates: start: 20101117
  7. CALTAN [Suspect]
     Dosage: 1 G, UNKNOWN
     Route: 048
     Dates: start: 20110525
  8. ROCALTROL [Suspect]
     Indication: HYPERPHOSPHATAEMIA
     Dosage: 1.0 ?G, UNKNOWN (PER WEEK)
     Route: 042
     Dates: start: 20090206, end: 20100909
  9. ROCALTROL [Suspect]
     Dosage: 1.5 ?G, UNKNOWN (PER WEEK)
     Route: 042
     Dates: start: 20100910, end: 20101207
  10. ROCALTROL [Suspect]
     Dosage: 1.0 ?G, UNKNOWN (PER WEEK)
     Route: 042
     Dates: start: 20101208, end: 20110310
  11. ROCALTROL [Suspect]
     Dosage: 1.5 ?G, UNKNOWN (PER WEEK)
     Route: 042
     Dates: start: 20110311
  12. ROCALTROL [Suspect]
     Dosage: 1.0 ?G, UNKNOWN (PER WEEK)
     Route: 042
     Dates: start: 20130306
  13. REGPARA [Suspect]
     Indication: HYPERPARATHYROIDISM SECONDARY
     Dosage: 25 MG, UNKNOWN
     Route: 048
     Dates: start: 20100526, end: 20111102
  14. REGPARA [Suspect]
     Dosage: 75 MG, UNKNOWN (PER WEEK)
     Route: 048
     Dates: start: 20120316, end: 20120322
  15. REGPARA [Suspect]
     Dosage: 37.5 MG, UNKNOWN (PER WEEK)
     Route: 048
     Dates: start: 20120323, end: 20120326
  16. REGPARA [Suspect]
     Dosage: 12.5 MG, UNKNOWN
     Route: 048
     Dates: start: 20120402, end: 20120513
  17. REGPARA [Suspect]
     Dosage: 25 MG, UNKNOWN
     Route: 048
     Dates: start: 20120514, end: 20130206
  18. REGPARA [Suspect]
     Dosage: 75 MG, UNKNOWN (PER WEEK)
     Route: 048
     Dates: start: 20130705, end: 20131210
  19. REGPARA [Suspect]
     Dosage: 150 MG, UNKNOWN (PER WEEK)
     Route: 048
     Dates: start: 20131211
  20. KIKLIN [Suspect]
     Indication: HYPERPHOSPHATAEMIA
     Dosage: 1.5 G, 1X/DAY:QD
     Route: 048
     Dates: start: 20121205, end: 20121214
  21. PURSENNID                          /00571902/ [Concomitant]
     Indication: HYPERPARATHYROIDISM SECONDARY
     Dosage: 36 MG, UNKNOWN
     Route: 048

REACTIONS (3)
  - Gastric ulcer [Recovering/Resolving]
  - Myocardial ischaemia [Recovering/Resolving]
  - Condition aggravated [Recovering/Resolving]
